FAERS Safety Report 7785209-1 (Version None)
Quarter: 2011Q3

REPORT INFORMATION
  Report Type: 
  Country: None (occurrence: None)
  Receive Date: 20110929
  Receipt Date: 20110926
  Transmission Date: 20111222
  Serious: Yes (Other)
  Sender: FDA-Public Use
  Company Number: US-TEVA-294599USA

PATIENT
  Sex: Female

DRUGS (8)
  1. METHOTREXATE [Suspect]
     Indication: RHEUMATOID ARTHRITIS
     Dosage: 2.1429 MILLIGRAM;
     Route: 048
     Dates: start: 20000127
  2. MULTI-VITAMINS [Concomitant]
     Dates: start: 20000101
  3. CALCIUM CARBONATE [Concomitant]
     Dates: start: 20000101
  4. FOLIC ACID [Concomitant]
     Dates: start: 20000127
  5. MELOXICAM [Concomitant]
     Dates: start: 20060407
  6. PANTOPRAZOLE SODIUM [Concomitant]
     Dates: start: 20040220
  7. ZOLPIDEM TARTRATE [Concomitant]
     Dates: start: 20000101
  8. INVESTIGATIONAL DRUG (ABATACEPT) [Suspect]
     Indication: RHEUMATOID ARTHRITIS
     Dosage: 17.8571 MILLIGRAM;
     Route: 057
     Dates: start: 20080804

REACTIONS (1)
  - BREAST CANCER FEMALE [None]
